FAERS Safety Report 8518966-7 (Version None)
Quarter: 2012Q3

REPORT INFORMATION
  Report Type: 
  Country: None (occurrence: None)
  Receive Date: 20120718
  Receipt Date: 20120713
  Transmission Date: 20120928
  Serious: Yes (Life-Threatening)
  Sender: FDA-Public Use
  Company Number: JP-GLAXOSMITHKLINE-B0815149A

PATIENT
  Age: 44 Year
  Sex: Male
  Weight: 53 kg

DRUGS (8)
  1. ALPRAZOLAM [Concomitant]
     Route: 048
  2. NITRAZEPAM [Concomitant]
     Route: 048
  3. MAGLAX [Concomitant]
     Route: 048
  4. TEGRETOL [Suspect]
     Indication: BIPOLAR DISORDER
     Dosage: 200MG PER DAY
     Route: 048
     Dates: start: 20110307, end: 20120606
  5. LITHIUM CARBONATE [Concomitant]
     Route: 048
  6. LAMICTAL [Suspect]
     Indication: BIPOLAR DISORDER
     Dosage: 25MG PER DAY
     Route: 048
     Dates: start: 20120517, end: 20120530
  7. LAMICTAL [Suspect]
     Dosage: 75MG PER DAY
     Route: 048
     Dates: start: 20120531, end: 20120606
  8. DOGMATYL [Concomitant]
     Route: 048

REACTIONS (10)
  - NASOPHARYNGITIS [None]
  - LIP EROSION [None]
  - LYMPHOCYTE STIMULATION TEST POSITIVE [None]
  - GENERALISED ERYTHEMA [None]
  - CHILLS [None]
  - ERYTHEMA MULTIFORME [None]
  - ENANTHEMA [None]
  - DRUG ERUPTION [None]
  - PYREXIA [None]
  - STEVENS-JOHNSON SYNDROME [None]
